FAERS Safety Report 20709392 (Version 1)
Quarter: 2022Q2

REPORT INFORMATION
  Report Type: Spontaneous
  Country: FR (occurrence: FR)
  Receive Date: 20220414
  Receipt Date: 20220414
  Transmission Date: 20220721
  Serious: Yes (Life-Threatening, Hospitalization, Other)
  Sender: FDA-Public Use
  Company Number: None

PATIENT
  Age: 49 Year
  Sex: Female
  Weight: 65.5 kg

DRUGS (7)
  1. CISPLATIN [Suspect]
     Active Substance: CISPLATIN
     Indication: Squamous cell carcinoma of the cervix
     Dosage: 1 MG/ML
     Route: 042
     Dates: start: 20220302, end: 20220302
  2. SOLUPRED [Concomitant]
     Indication: Chemotherapy side effect prophylaxis
     Route: 048
     Dates: start: 20220302, end: 20220302
  3. POLARAMINE [Concomitant]
     Active Substance: DEXCHLORPHENIRAMINE MALEATE
     Indication: Chemotherapy side effect prophylaxis
     Dosage: 5 MG/1 ML, 5MG AT 18H45 FOLLOWED BY 5MG AT 20H15
     Route: 041
     Dates: start: 20220302, end: 20220302
  4. SOLU-MEDROL [Concomitant]
     Active Substance: METHYLPREDNISOLONE SODIUM SUCCINATE
     Indication: Adverse drug reaction
     Dates: start: 20220302, end: 20220302
  5. PIPERACILLIN SODIUM\TAZOBACTAM SODIUM [Concomitant]
     Active Substance: PIPERACILLIN SODIUM\TAZOBACTAM SODIUM
     Indication: Adverse drug reaction
     Dates: start: 20220302, end: 20220302
  6. ONDANSETRON [Concomitant]
     Active Substance: ONDANSETRON
     Indication: Chemotherapy side effect prophylaxis
     Route: 048
     Dates: start: 20220302, end: 20220302
  7. AMIKACIN SULFATE [Concomitant]
     Active Substance: AMIKACIN SULFATE
     Indication: Adverse drug reaction
     Dates: start: 20220302, end: 20220302

REACTIONS (5)
  - Anaphylactic shock [Recovered/Resolved]
  - Rash morbilliform [Recovered/Resolved with Sequelae]
  - Vomiting [Recovered/Resolved]
  - Pyrexia [Recovered/Resolved]
  - Acute kidney injury [Recovered/Resolved with Sequelae]

NARRATIVE: CASE EVENT DATE: 20220302
